FAERS Safety Report 7713915-3 (Version None)
Quarter: 2011Q3

REPORT INFORMATION
  Report Type: 
  Country: None (occurrence: None)
  Receive Date: 20110826
  Receipt Date: 20110818
  Transmission Date: 20111222
  Serious: Yes (Hospitalization, Other)
  Sender: FDA-Public Use
  Company Number: US-PFIZER INC-2007038012

PATIENT
  Sex: Female
  Weight: 79.4 kg

DRUGS (5)
  1. LEVOTHYROXINE SODIUM [Concomitant]
  2. NEURONTIN [Suspect]
     Dosage: 600 MG HALF A TABLET IN THE AM AND 1 TABLET ORALLY AT BED TIME
     Dates: start: 20030401
  3. NEXIUM [Concomitant]
  4. NEURONTIN [Suspect]
     Dosage: 300 MG 1 CAP Q AM AND 2 CAP Q HS
     Dates: start: 20030501, end: 20031001
  5. ZOLOFT [Concomitant]
     Dosage: UNK

REACTIONS (12)
  - HALLUCINATION, VISUAL [None]
  - SUICIDE ATTEMPT [None]
  - PSYCHOTIC DISORDER [None]
  - DEPRESSION [None]
  - PARANOIA [None]
  - WEIGHT DECREASED [None]
  - HALLUCINATION, AUDITORY [None]
  - SELF-MEDICATION [None]
  - ANXIETY [None]
  - BIPOLAR DISORDER [None]
  - PARAESTHESIA [None]
  - INSOMNIA [None]
